FAERS Safety Report 8486140-9 (Version None)
Quarter: 2012Q3

REPORT INFORMATION
  Report Type: 
  Country: None (occurrence: None)
  Receive Date: 20120703
  Receipt Date: 20120621
  Transmission Date: 20120928
  Serious: Yes (Life-Threatening, Hospitalization)
  Sender: FDA-Public Use
  Company Number: JP-ROCHE-758894

PATIENT
  Sex: Female
  Weight: 35 kg

DRUGS (20)
  1. FERROUS CITRATE [Concomitant]
     Route: 048
  2. GLYCYRON [Concomitant]
     Route: 048
  3. ACTEMRA [Suspect]
     Indication: RHEUMATOID ARTHRITIS
     Dosage: ONCE EVERY 4-6 WEEKS
     Route: 041
  4. CLARITHROMYCIN [Concomitant]
     Route: 048
  5. LIVALO [Concomitant]
     Route: 048
  6. ACTEMRA [Suspect]
     Dosage: ONCE EVERY 4-6 WEEKS, LAST DOSE PRIOR TO SAE : 25/JAN/2011
     Route: 041
  7. ACTONEL [Concomitant]
     Route: 048
     Dates: start: 20101125, end: 20110216
  8. RABEPRAZOLE SODIUM [Concomitant]
     Route: 048
  9. CALFINA [Concomitant]
     Route: 048
     Dates: start: 20081028, end: 20110216
  10. ACETAMINOPHEN [Concomitant]
     Route: 048
  11. PREDNISOLONE [Concomitant]
     Indication: RHEUMATOID ARTHRITIS
     Route: 048
     Dates: start: 20090903, end: 20110206
  12. PREDNISOLONE [Concomitant]
     Route: 048
  13. GANATON [Concomitant]
     Route: 048
  14. ANTIHYPERTENSIVE MEDICATION NOS [Concomitant]
     Route: 048
  15. URSO 250 [Concomitant]
     Route: 048
  16. CELECOXIB [Concomitant]
     Route: 048
  17. PROMACTA [Concomitant]
     Route: 048
  18. ACTEMRA [Suspect]
     Dosage: INJECTION
     Route: 041
     Dates: start: 20081028, end: 20091224
  19. LEVOTHYROXINE SODIUM [Concomitant]
     Route: 048
  20. MAGNESIUM OXIDE [Concomitant]
     Route: 048

REACTIONS (3)
  - GASTRITIS [None]
  - SEPSIS [None]
  - DISSEMINATED INTRAVASCULAR COAGULATION [None]
